FAERS Safety Report 5600529-4 (Version None)
Quarter: 2008Q1

REPORT INFORMATION
  Report Type: 
  Country: None (occurrence: None)
  Receive Date: 20080123
  Receipt Date: 20080121
  Transmission Date: 20080703
  Serious: Yes (Hospitalization)
  Sender: FDA-Public Use
  Company Number: US-ROXANE LABORATORIES, INC-2008-DE-00374GD

PATIENT
  Age: 8 Year
  Sex: Female

DRUGS (4)
  1. PREDNISONE [Suspect]
     Route: 048
  2. STEROID [Suspect]
     Route: 055
  3. ALBUTEROL [Concomitant]
     Indication: CYSTIC FIBROSIS
     Route: 055
  4. PULMOZYME [Concomitant]
     Indication: CYSTIC FIBROSIS
     Route: 055

REACTIONS (4)
  - ATELECTASIS [None]
  - BRONCHIAL SECRETION RETENTION [None]
  - BRONCHOPULMONARY ASPERGILLOSIS [None]
  - METHICILLIN-RESISTANT STAPHYLOCOCCAL AUREUS TEST POSITIVE [None]
